FAERS Safety Report 9625805 (Version 1)
Quarter: 2013Q4

REPORT INFORMATION
  Report Type: Spontaneous
  Country: US (occurrence: None)
  Receive Date: 20131015
  Receipt Date: 20131015
  Transmission Date: 20140711
  Serious: No
  Sender: FDA-Public Use
  Company Number: None

PATIENT
  Age: 77 Year
  Sex: Female
  Weight: 73.03 kg

DRUGS (1)
  1. WELCHOL [Suspect]
     Indication: BLOOD CHOLESTEROL INCREASED
     Dosage: 3 PILLS WITH A MEAL, TWICE DAILY, TAKEN BY MOUTH
     Route: 048
     Dates: start: 20131009, end: 20131011

REACTIONS (6)
  - Neck pain [None]
  - Nausea [None]
  - Cough [None]
  - Rhinorrhoea [None]
  - Discomfort [None]
  - Sleep disorder [None]
